FAERS Safety Report 19004168 (Version 12)
Quarter: 2022Q3

REPORT INFORMATION
  Report Type: Report from Study
  Country: ES (occurrence: ES)
  Receive Date: 20210312
  Receipt Date: 20220711
  Transmission Date: 20221027
  Serious: Yes (Hospitalization, Other)
  Sender: FDA-Public Use
  Company Number: ES-ROCHE-2757043

PATIENT
  Age: 61 Year
  Sex: Female
  Weight: 61 kg

DRUGS (42)
  1. BEVACIZUMAB [Suspect]
     Active Substance: BEVACIZUMAB
     Indication: Non-small cell lung cancer
     Dosage: 458 MG
     Route: 042
     Dates: start: 20201229
  2. CARBOPLATIN [Suspect]
     Active Substance: CARBOPLATIN
     Indication: Non-small cell lung cancer
     Dosage: 514 MG
     Route: 065
     Dates: start: 20201229
  3. ETOPOSIDE [Suspect]
     Active Substance: ETOPOSIDE
     Indication: Non-small cell lung cancer
     Dosage: UNK
     Route: 065
  4. PACLITAXEL [Suspect]
     Active Substance: PACLITAXEL
     Indication: Non-small cell lung cancer
     Dosage: 325 MG
     Route: 065
     Dates: start: 20201229
  5. ATEZOLIZUMAB [Suspect]
     Active Substance: ATEZOLIZUMAB
     Indication: Non-small cell lung cancer
     Dosage: NEXT DOSE: 11FEB2021START DATE OF MOST RECENT DOSE OF STUDY DRUG PRIOR TO MUCOSITIS 23AUG2021
     Route: 042
     Dates: start: 20201229
  6. ATEZOLIZUMAB [Suspect]
     Active Substance: ATEZOLIZUMAB
     Dosage: 1200 MG, EVERY 3 WEEKS
     Route: 042
     Dates: start: 20210121
  7. ONDANSETRON [Concomitant]
     Active Substance: ONDANSETRON
     Indication: Prophylaxis
     Dosage: 0.33 DF, DAILY
     Dates: start: 20201228, end: 20210101
  8. ONDANSETRON [Concomitant]
     Active Substance: ONDANSETRON
     Dosage: UNK
     Dates: start: 20210127, end: 20210131
  9. ONDANSETRON [Concomitant]
     Active Substance: ONDANSETRON
     Dosage: 0.33 DF, 3X/DAY
     Dates: start: 20210325, end: 20220221
  10. GABAPENTIN [Concomitant]
     Active Substance: GABAPENTIN
     Indication: Prophylaxis
     Dosage: 0.33 DF, DAILY
     Dates: start: 20201229
  11. ACETAMINOPHEN [Concomitant]
     Active Substance: ACETAMINOPHEN
     Indication: Prophylaxis
     Dosage: 0.33 DF, DAILY
     Dates: start: 20201229
  12. MASTICAL D [Concomitant]
     Dosage: 1 DF, DAILY
     Dates: start: 20201229
  13. LORAZEPAM [Concomitant]
     Active Substance: LORAZEPAM
     Indication: Prophylaxis
     Dosage: 0.33 DF, DAILY
     Dates: start: 20201229
  14. DEXAMETHASONE [Concomitant]
     Active Substance: DEXAMETHASONE
     Indication: Prophylaxis
     Dosage: 0.5 DF, DAILY
     Dates: start: 20201229
  15. METAMIZOL [Concomitant]
     Active Substance: METAMIZOLE SODIUM
     Indication: Prophylaxis
     Dosage: 2 G,FREQ: 0.33 UNITS, DAILY
     Dates: start: 20201229
  16. DESVENLAFAXINE [Concomitant]
     Active Substance: DESVENLAFAXINE
     Indication: Prophylaxis
     Dosage: 1 DF, DAILY
     Dates: start: 20201229
  17. MST-30 [Concomitant]
     Indication: Prophylaxis
     Dosage: 0.5 DF, DAILY
     Dates: start: 20201229
  18. MORPHINE [Concomitant]
     Active Substance: MORPHINE
     Indication: Prophylaxis
     Dosage: 0.5 DF, DAILY
     Dates: start: 20201229
  19. PRISTIQ EXTENDED-RELEASE [Concomitant]
     Active Substance: DESVENLAFAXINE SUCCINATE
     Indication: Prophylaxis
     Dosage: 1 DF, DAILY
     Dates: start: 20201229
  20. METHYLPREDNISOLONE [Concomitant]
     Active Substance: METHYLPREDNISOLONE
     Dosage: 1 DF, DAILY
     Dates: start: 20210923
  21. PANTOPRAZOLE [Concomitant]
     Active Substance: PANTOPRAZOLE
     Indication: Prophylaxis
     Dosage: 0.5 DF, DAILY
     Dates: start: 20210430
  22. COVID-19 VACCINE [Concomitant]
     Indication: Prophylaxis
     Dosage: DOSE NUMBER UNKNOWN, SINGLE
     Dates: start: 202105, end: 202105
  23. CIPROFLOXACIN [Concomitant]
     Active Substance: CIPROFLOXACIN
     Indication: Prophylaxis
     Dosage: 0.5 DF, DAILY
     Dates: start: 20210531, end: 20210607
  24. CIPROFLOXACIN [Concomitant]
     Active Substance: CIPROFLOXACIN
     Dosage: 0.5 DF, DAILY
     Dates: start: 20210621, end: 20210628
  25. PREGABALIN [Concomitant]
     Active Substance: PREGABALIN
     Dosage: UNK
     Dates: start: 20210415
  26. NYSTATIN [Concomitant]
     Active Substance: NYSTATIN
     Dosage: 3X/DAY
     Dates: start: 20201229
  27. NYSTATIN [Concomitant]
     Active Substance: NYSTATIN
     Dosage: 2X/DAY
     Dates: start: 20210430
  28. NYSTATIN [Concomitant]
     Active Substance: NYSTATIN
     Dosage: UNK, 1X/DAY
     Dates: start: 20210506
  29. BUTYLSCOPOLAMINE [Concomitant]
     Active Substance: BUTYLSCOPOLAMINE
     Dosage: 0.33 DF, DAILY
     Dates: start: 20210506
  30. INFLUENZA VIRUS VACCINE [Concomitant]
     Active Substance: INFLUENZA VIRUS VACCINE
     Indication: Prophylaxis
     Dosage: DOSE NUMBER UNKNOWN, SINGLE
     Dates: start: 202201, end: 202201
  31. BUSCAPINA [Concomitant]
     Dosage: UNK
     Dates: start: 20210506
  32. DEXAMETHASONE [Concomitant]
     Active Substance: DEXAMETHASONE
     Indication: Prophylaxis
     Dosage: UNK
     Dates: start: 20201229
  33. ATROVENT [Concomitant]
     Active Substance: IPRATROPIUM BROMIDE
     Indication: Prophylaxis
     Dosage: UNK
     Dates: start: 20220221
  34. FOSAPREPITANT [Concomitant]
     Active Substance: FOSAPREPITANT
     Indication: Prophylaxis
     Dosage: UNK
     Dates: start: 20210211, end: 20210211
  35. LOPERAMIDE [Concomitant]
     Active Substance: LOPERAMIDE
     Dosage: UNK
     Dates: start: 20220503, end: 20220503
  36. MONUROL [Concomitant]
     Active Substance: FOSFOMYCIN TROMETHAMINE
     Dosage: 1X/DAY
     Dates: start: 20220221, end: 20220223
  37. ATEZOLIZUMAB [Concomitant]
     Active Substance: ATEZOLIZUMAB
     Dosage: UNK
     Route: 065
  38. ZOLEDRONIC ACID [Concomitant]
     Active Substance: ZOLEDRONIC ACID
     Indication: Prophylaxis
     Dosage: UNK
     Dates: start: 20210121, end: 20210211
  39. ZOLEDRONIC ACID [Concomitant]
     Active Substance: ZOLEDRONIC ACID
     Dosage: UNK
     Dates: start: 20210304, end: 20220131
  40. ALMAGATE [Concomitant]
     Active Substance: ALMAGATE
     Indication: Prophylaxis
     Dosage: 3X/DAY
     Dates: start: 20210621, end: 20220221
  41. PIPERACILLIN SODIUM\TAZOBACTAM SODIUM [Concomitant]
     Active Substance: PIPERACILLIN SODIUM\TAZOBACTAM SODIUM
     Indication: Prophylaxis
     Dosage: 1X/DAY
     Dates: end: 20220413
  42. PIPERACILLIN SODIUM\TAZOBACTAM SODIUM [Concomitant]
     Active Substance: PIPERACILLIN SODIUM\TAZOBACTAM SODIUM
     Dosage: 3X/DAY
     Dates: start: 20210621, end: 20220221

REACTIONS (9)
  - Vomiting [Recovered/Resolved]
  - Nausea [Not Recovered/Not Resolved]
  - Abdominal pain [Recovered/Resolved]
  - Nausea [Recovered/Resolved]
  - Haematuria [Recovered/Resolved]
  - Oral candidiasis [Recovered/Resolved]
  - Anxiety [Recovered/Resolved]
  - Mucosal inflammation [Recovered/Resolved]
  - Back pain [Not Recovered/Not Resolved]

NARRATIVE: CASE EVENT DATE: 20210104
